FAERS Safety Report 10244556 (Version 1)
Quarter: 2014Q2

REPORT INFORMATION
  Report Type: Spontaneous
  Country: US (occurrence: US)
  Receive Date: 20140618
  Receipt Date: 20140618
  Transmission Date: 20141212
  Serious: No
  Sender: FDA-Public Use
  Company Number: US-B.I. PHARMACEUTICALS,INC./RIDGEFIELD-2014-BI-26452BP

PATIENT
  Age: 59 Year
  Sex: Female
  Weight: 77 kg

DRUGS (4)
  1. SPIRIVA [Suspect]
     Indication: CHRONIC OBSTRUCTIVE PULMONARY DISEASE
     Dosage: 18 MCG
     Route: 048
     Dates: start: 2008
  2. PRILOSEC [Concomitant]
     Indication: GASTRECTOMY
     Dosage: 20.6 MG
     Route: 048
     Dates: start: 201405
  3. ADVAIR [Concomitant]
     Indication: CHRONIC OBSTRUCTIVE PULMONARY DISEASE
     Dosage: (INHALATION AEROSOL) STRENGTH: 250 MCG/50 MCG; DAILY DOSE: 250 MCG/ 50 MCG
     Route: 055
     Dates: start: 2006
  4. ADVAIR [Concomitant]
     Indication: ASTHMA

REACTIONS (1)
  - Incorrect route of drug administration [Recovered/Resolved]
